FAERS Safety Report 9165204 (Version 1)
Quarter: 2013Q1

REPORT INFORMATION
  Report Type: Spontaneous
  Country: US (occurrence: None)
  Receive Date: 20130314
  Receipt Date: 20130314
  Transmission Date: 20140127
  Serious: No
  Sender: FDA-Public Use
  Company Number: None

PATIENT
  Age: 66 Year
  Sex: Female
  Weight: 70.31 kg

DRUGS (1)
  1. AMOXICILLIN 500MG TEVA [Suspect]
     Route: 048
     Dates: start: 20130216, end: 20130220

REACTIONS (3)
  - Rash [None]
  - Pruritus [None]
  - Hypersensitivity [None]
